FAERS Safety Report 4790336-7 (Version None)
Quarter: 2005Q4

REPORT INFORMATION
  Report Type: 
  Country: None (occurrence: None)
  Receive Date: 20051005
  Receipt Date: 20051005
  Transmission Date: 20060501
  Serious: Yes (Life-Threatening, Hospitalization)
  Sender: FDA-Public Use
  Company Number: None

PATIENT
  Sex: Female

DRUGS (15)
  1. COLCHICINE [Suspect]
     Indication: GOUT
     Dosage: 0.6 MG PO DAILY
     Route: 048
  2. LISINOPRIL [Suspect]
     Indication: HYPERTENSION
     Dosage: 20 MG PO DAILY
     Route: 048
  3. LISINOPRIL [Suspect]
     Indication: RENAL DISORDER
     Dosage: 20 MG PO DAILY
     Route: 048
  4. DIGOXIN [Concomitant]
  5. FRUSEMIDE [Concomitant]
  6. SYNTHROID [Concomitant]
  7. INDOMETHACIN [Concomitant]
  8. POTASSIUM [Concomitant]
  9. INSULIN [Concomitant]
  10. BACLOFEN [Concomitant]
  11. AMITRIPTYLINE HCL [Concomitant]
  12. DOCUSATE [Concomitant]
  13. CARVEDILOL [Concomitant]
  14. MORPHINE SULFATE [Concomitant]
  15. CALCIUM CARBONATE [Concomitant]

REACTIONS (5)
  - BLOOD CREATININE INCREASED [None]
  - FALL [None]
  - GAIT DISTURBANCE [None]
  - MULTIPLE DRUG OVERDOSE [None]
  - UNRESPONSIVE TO VERBAL STIMULI [None]
